FAERS Safety Report 6960721-3 (Version None)
Quarter: 2010Q3

REPORT INFORMATION
  Report Type: 
  Country: None (occurrence: None)
  Receive Date: 20100901
  Receipt Date: 20100825
  Transmission Date: 20110219
  Serious: Yes (Death, Life-Threatening, Hospitalization, Other)
  Sender: FDA-Public Use
  Company Number: JP-ROCHE-718673

PATIENT
  Sex: Male
  Weight: 58.9 kg

DRUGS (31)
  1. ROCEPHIN [Suspect]
     Indication: PRODUCT USED FOR UNKNOWN INDICATION
     Route: 041
     Dates: start: 20100707, end: 20100713
  2. DORMICUM (INJ) [Suspect]
     Indication: RESTLESSNESS
     Route: 041
     Dates: start: 20100703, end: 20100708
  3. DORMICUM (INJ) [Suspect]
     Route: 041
     Dates: start: 20100709, end: 20100709
  4. DORMICUM (INJ) [Suspect]
     Route: 041
     Dates: start: 20100710, end: 20100711
  5. DORMICUM (INJ) [Suspect]
     Route: 041
     Dates: start: 20100712, end: 20100712
  6. DORMICUM (INJ) [Suspect]
     Dosage: SECOND INDICATION: SEDATION
     Route: 041
     Dates: start: 20100713, end: 20100713
  7. COTRIM [Suspect]
     Indication: PRODUCT USED FOR UNKNOWN INDICATION
     Route: 048
     Dates: start: 20100706, end: 20100713
  8. DIAZEPAM [Suspect]
     Indication: PRODUCT USED FOR UNKNOWN INDICATION
     Route: 041
     Dates: start: 20100702, end: 20100702
  9. DIAZEPAM [Suspect]
     Route: 041
     Dates: start: 20100712, end: 20100717
  10. DIAZEPAM [Suspect]
     Route: 048
     Dates: start: 20100712, end: 20100717
  11. RISPERDAL [Suspect]
     Indication: PRODUCT USED FOR UNKNOWN INDICATION
     Route: 048
     Dates: start: 20100712, end: 20100717
  12. MINOCYCLINE HCL [Suspect]
     Indication: PRODUCT USED FOR UNKNOWN INDICATION
     Route: 041
     Dates: start: 20100707, end: 20100713
  13. DIPRIVAN [Suspect]
     Indication: PRODUCT USED FOR UNKNOWN INDICATION
     Route: 041
     Dates: start: 20100703, end: 20100712
  14. LASIX [Concomitant]
     Dates: start: 20100715, end: 20100719
  15. TAKEPRON [Concomitant]
     Dosage: FORM: ORODISPERSIBLE CR TABLET
     Dates: start: 20100615, end: 20100719
  16. PREDONINE [Concomitant]
     Dates: start: 20100715, end: 20100719
  17. ZANTAC [Concomitant]
     Dates: start: 20100701, end: 20100702
  18. OMEPRAL [Concomitant]
     Dates: start: 20100701, end: 20100714
  19. UNASYN [Concomitant]
     Dates: start: 20100703, end: 20100706
  20. ATARAX [Concomitant]
     Dates: start: 20100702, end: 20100702
  21. LEPETAN [Concomitant]
     Dates: start: 20100703, end: 20100712
  22. PANTOL [Concomitant]
     Dates: start: 20100710, end: 20100712
  23. PRIMPERAN TAB [Concomitant]
     Dates: start: 20100711, end: 20100713
  24. LORAZEPAM [Concomitant]
     Dates: start: 20100629, end: 20100712
  25. GLUCONSAN K [Concomitant]
     Dates: start: 20100630, end: 20100702
  26. CALONAL [Concomitant]
     Indication: PYREXIA
     Dates: start: 20100630, end: 20100702
  27. URSO 250 [Concomitant]
     Dates: start: 20100703, end: 20100718
  28. ANHIBA [Concomitant]
     Dates: start: 20100705, end: 20100709
  29. FOLIAMIN [Concomitant]
     Route: 065
  30. LACTULOSE [Concomitant]
  31. KAYTWO N [Concomitant]
     Dates: start: 20100101

REACTIONS (4)
  - ALTERED STATE OF CONSCIOUSNESS [None]
  - ELECTROCARDIOGRAM QT PROLONGED [None]
  - SUBACUTE HEPATIC FAILURE [None]
  - VENTRICULAR TACHYCARDIA [None]
